FAERS Safety Report 8504459-X (Version None)
Quarter: 2012Q3

REPORT INFORMATION
  Report Type: 
  Country: None (occurrence: None)
  Receive Date: 20120711
  Receipt Date: 20120629
  Transmission Date: 20120928
  Serious: No
  Sender: FDA-Public Use
  Company Number: US-ASTRAZENECA-2012SE44601

PATIENT
  Age: 55 Year
  Sex: Female

DRUGS (3)
  1. CRESTOR [Suspect]
     Route: 048
  2. LOVASTATIN [Concomitant]
  3. SYMBICORT [Suspect]
     Dosage: UNKNOWN
     Route: 055

REACTIONS (3)
  - DRUG DOSE OMISSION [None]
  - BLOOD CHOLESTEROL INCREASED [None]
  - DYSPNOEA [None]
